FAERS Safety Report 5139799-8 (Version None)
Quarter: 2006Q4

REPORT INFORMATION
  Report Type: 
  Country: None (occurrence: None)
  Receive Date: 20061025
  Receipt Date: 20061011
  Transmission Date: 20070319
  Serious: Yes (Death)
  Sender: FDA-Public Use
  Company Number: US-CVT-062068

PATIENT
  Age: 87 Year
  Sex: Male

DRUGS (1)
  1. RANEXA [Suspect]
     Indication: ANGINA PECTORIS
     Dosage: 500 M G,  BID, ORAL
     Route: 048
     Dates: start: 20060101, end: 20060101

REACTIONS (1)
  - SUDDEN DEATH [None]
